FAERS Safety Report 20428651 (Version 1)
Quarter: 2022Q1

REPORT INFORMATION
  Report Type: Report from Study
  Country: DE (occurrence: DE)
  Receive Date: 20220204
  Receipt Date: 20220204
  Transmission Date: 20220423
  Serious: Yes (Hospitalization, Other)
  Sender: FDA-Public Use
  Company Number: DE-CELLTRION INC.-2022DE000871

PATIENT

DRUGS (16)
  1. INFLIXIMAB [Suspect]
     Active Substance: INFLIXIMAB
     Indication: Ankylosing spondylitis
     Dosage: 5 MG, EVERY 1 WEEK
     Route: 048
     Dates: start: 20120101, end: 20181105
  2. INFLIXIMAB [Suspect]
     Active Substance: INFLIXIMAB
     Dosage: 5 MG, EVERY 1 WEEK
     Route: 048
     Dates: start: 20190404
  3. INFLIXIMAB [Suspect]
     Active Substance: INFLIXIMAB
     Dosage: UNK
     Route: 065
     Dates: start: 20210915
  4. SIMPONI [Suspect]
     Active Substance: GOLIMUMAB
     Indication: Ankylosing spondylitis
     Dosage: 50 MG, EVERY 4 WEEKS
     Route: 058
     Dates: start: 20180226, end: 20191010
  5. SIMPONI [Suspect]
     Active Substance: GOLIMUMAB
     Dosage: 50 MG, EVERY 4 WEEKS
     Route: 058
     Dates: start: 20180226, end: 20191010
  6. SIMPONI [Suspect]
     Active Substance: GOLIMUMAB
     Dosage: 50 MG, EVERY 4 WEEKS
     Route: 058
     Dates: start: 20180226, end: 20191010
  7. SIMPONI [Suspect]
     Active Substance: GOLIMUMAB
     Dosage: 50 MG, EVERY 4 WEEKS
     Route: 058
     Dates: start: 20200502, end: 20210515
  8. SIMPONI [Suspect]
     Active Substance: GOLIMUMAB
     Dosage: 50 MG, EVERY 4 WEEKS
     Route: 058
     Dates: start: 20200502, end: 20210515
  9. SIMPONI [Suspect]
     Active Substance: GOLIMUMAB
     Dosage: 50 MG, EVERY 4 WEEKS
     Route: 058
     Dates: start: 20200502, end: 20210515
  10. SIMPONI [Suspect]
     Active Substance: GOLIMUMAB
     Dosage: 50 MG, EVERY 6 WEEKS
     Route: 058
     Dates: start: 20191128
  11. SIMPONI [Suspect]
     Active Substance: GOLIMUMAB
     Dosage: 50 MG, EVERY 6 WEEKS
     Route: 058
     Dates: start: 20191128
  12. SIMPONI [Suspect]
     Active Substance: GOLIMUMAB
     Dosage: 50 MG, EVERY 6 WEEKS
     Route: 058
     Dates: start: 20191128
  13. CELECOXIB [Suspect]
     Active Substance: CELECOXIB
     Indication: Ankylosing spondylitis
     Dosage: 800 MG, EVERY 1 WEEK
     Route: 065
     Dates: start: 20190101, end: 20190501
  14. CELECOXIB [Suspect]
     Active Substance: CELECOXIB
     Dosage: 200 MG, 7 DAYS PER WEEK
     Route: 065
     Dates: start: 20170918, end: 20181105
  15. CELECOXIB [Suspect]
     Active Substance: CELECOXIB
     Dosage: 200 MG, 7 DAYS PER WEEK
     Route: 065
     Dates: start: 20191107, end: 20201215
  16. ACEMETACIN [Concomitant]
     Active Substance: ACEMETACIN
     Dosage: 180 MG
     Route: 065
     Dates: start: 20181105, end: 20181108

REACTIONS (16)
  - Osteochondrosis [Recovered/Resolved]
  - Ovarian cyst [Unknown]
  - Axial spondyloarthritis [Recovered/Resolved]
  - Intervertebral disc protrusion [Recovered/Resolved]
  - Diagnostic procedure [Recovered/Resolved]
  - Postoperative adhesion [Recovered/Resolved]
  - Hypertonic bladder [Unknown]
  - Rotator cuff syndrome [Recovered/Resolved]
  - Upper respiratory tract infection [Unknown]
  - Laryngitis [Unknown]
  - Multiple sclerosis [Unknown]
  - Urinary tract infection [Unknown]
  - Product use issue [Unknown]
  - Off label use [Unknown]
  - Off label use [Unknown]
  - Off label use [Unknown]

NARRATIVE: CASE EVENT DATE: 20190304
